FAERS Safety Report 6090918-9 (Version None)
Quarter: 2009Q1

REPORT INFORMATION
  Report Type: 
  Country: None (occurrence: None)
  Receive Date: 20090220
  Receipt Date: 20090210
  Transmission Date: 20090719
  Serious: No
  Sender: FDA-Public Use
  Company Number: 2009-191438-NL

PATIENT
  Sex: Female

DRUGS (1)
  1. ETONOGESTREL [Suspect]
     Dosage: DF
     Dates: start: 20060101

REACTIONS (4)
  - INJURY [None]
  - MEDICAL DEVICE COMPLICATION [None]
  - PARAESTHESIA [None]
  - PERIPHERAL NERVE OPERATION [None]
